FAERS Safety Report 5374564-8 (Version None)
Quarter: 2007Q2

REPORT INFORMATION
  Report Type: 
  Country: None (occurrence: None)
  Receive Date: 20070629
  Receipt Date: 20070627
  Transmission Date: 20071010
  Serious: Yes (Life-Threatening, Hospitalization, Other)
  Sender: FDA-Public Use
  Company Number: US-BRISTOL-MYERS SQUIBB COMPANY-13445929

PATIENT
  Age: 54 Year
  Sex: Male
  Weight: 260 kg

DRUGS (1)
  1. TEQUIN [Suspect]
     Indication: SINUSITIS
     Dates: start: 20031206

REACTIONS (10)
  - ACUTE RESPIRATORY DISTRESS SYNDROME [None]
  - COMA [None]
  - DEEP VEIN THROMBOSIS [None]
  - EMPYEMA [None]
  - HYPERGLYCAEMIA [None]
  - KETOACIDOSIS [None]
  - METABOLIC ACIDOSIS [None]
  - RENAL FAILURE ACUTE [None]
  - RHABDOMYOLYSIS [None]
  - SEPSIS [None]
